FAERS Safety Report 18146965 (Version 1)
Quarter: 2020Q3

REPORT INFORMATION
  Report Type: Spontaneous
  Country: FR (occurrence: FR)
  Receive Date: 20200813
  Receipt Date: 20200813
  Transmission Date: 20201103
  Serious: Yes (Other)
  Sender: FDA-Public Use
  Company Number: FR-MYLANLABS-2020M1070514

PATIENT
  Age: 73 Year
  Sex: Male

DRUGS (3)
  1. METHOTREXATE. [Suspect]
     Active Substance: METHOTREXATE
     Indication: ACUTE MYELOID LEUKAEMIA
     Dosage: 10?15 MG/WEEK
     Route: 065
  2. ATRA                               /00614702/ [Suspect]
     Active Substance: ATRACURIUM BESYLATE
     Indication: ACUTE MYELOID LEUKAEMIA
     Dosage: 45 MG/M2/DAY FOR TWO CONSECUTIVE WEEKS EACH MONTH
     Route: 065
  3. 6 MP [Suspect]
     Active Substance: MERCAPTOPURINE
     Indication: ACUTE MYELOID LEUKAEMIA
     Dosage: UNK, QD (50?100 MG/DAY)
     Route: 065

REACTIONS (2)
  - Rash [Unknown]
  - Product use in unapproved indication [Unknown]
